FAERS Safety Report 4726217-4 (Version None)
Quarter: 2005Q3

REPORT INFORMATION
  Report Type: 
  Country: None (occurrence: None)
  Receive Date: 20050725
  Receipt Date: 20050725
  Transmission Date: 20060218
  Serious: Yes (Hospitalization)
  Sender: FDA-Public Use
  Company Number: None

PATIENT
  Age: 15 Year
  Sex: Male

DRUGS (1)
  1. PHENYTOIN SODIUM [Suspect]
     Indication: NERVOUS SYSTEM DISORDER
     Dosage: 200 MG QHS PO
     Route: 048
     Dates: start: 20050508

REACTIONS (9)
  - ERYTHEMA [None]
  - LYMPHADENOPATHY [None]
  - PAIN [None]
  - PRURITUS [None]
  - PYREXIA [None]
  - RASH [None]
  - RASH MACULO-PAPULAR [None]
  - SCREAMING [None]
  - UPPER RESPIRATORY TRACT CONGESTION [None]
